FAERS Safety Report 25876504 (Version 2)
Quarter: 2025Q4

REPORT INFORMATION
  Report Type: Spontaneous
  Country: US (occurrence: US)
  Receive Date: 20251003
  Receipt Date: 20251013
  Transmission Date: 20260118
  Serious: No
  Sender: ROCHE
  Company Number: US-ROCHE-10000395885

PATIENT
  Age: 62 Year
  Sex: Female
  Weight: 97.52 kg

DRUGS (1)
  1. XOLAIR [Suspect]
     Active Substance: OMALIZUMAB
     Indication: Asthma
     Dosage: 375MG EVERY 2 WEEKS IN THE FORM OF (1) 300MG (1) 75MG AUTOINJECTOR
     Route: 058
     Dates: start: 202507

REACTIONS (3)
  - Underdose [Unknown]
  - Influenza [Recovered/Resolved]
  - Accidental exposure to product [Unknown]

NARRATIVE: CASE EVENT DATE: 20250901
